FAERS Safety Report 13372937 (Version 1)
Quarter: 2017Q1

REPORT INFORMATION
  Report Type: Report from Study
  Country: US (occurrence: US)
  Receive Date: 20170327
  Receipt Date: 20170327
  Transmission Date: 20170429
  Serious: Yes (Death, Hospitalization, Other)
  Sender: FDA-Public Use
  Company Number: US-JNJFOC-20170112649

PATIENT
  Age: 75 Year
  Sex: Male

DRUGS (4)
  1. LORAZEPAM. [Concomitant]
     Active Substance: LORAZEPAM
     Indication: INSOMNIA
  2. IMBRUVICA [Suspect]
     Active Substance: IBRUTINIB
     Indication: MANTLE CELL LYMPHOMA
     Route: 048
     Dates: start: 20160229
  3. SERTRALINE [Concomitant]
     Active Substance: SERTRALINE HYDROCHLORIDE
     Indication: PRODUCT USED FOR UNKNOWN INDICATION
  4. IMBRUVICA [Suspect]
     Active Substance: IBRUTINIB
     Indication: MANTLE CELL LYMPHOMA
     Route: 048
     Dates: start: 20160229

REACTIONS (15)
  - Abdominal pain [Unknown]
  - Bipolar disorder [Unknown]
  - Diarrhoea [Unknown]
  - Disease progression [Fatal]
  - Neoplasm [Unknown]
  - Enteritis [Unknown]
  - Skin lesion [Not Recovered/Not Resolved]
  - Suicidal ideation [Unknown]
  - Anxiety [Unknown]
  - Blood glucose abnormal [Unknown]
  - Pain in extremity [Unknown]
  - Depression [Unknown]
  - Blood sodium abnormal [Unknown]
  - Iron deficiency anaemia [Unknown]
  - Nasal oedema [Unknown]

NARRATIVE: CASE EVENT DATE: 2016
